FAERS Safety Report 4633454-6 (Version None)
Quarter: 2005Q2

REPORT INFORMATION
  Report Type: 
  Country: None (occurrence: None)
  Receive Date: 20050412
  Receipt Date: 20050323
  Transmission Date: 20051028
  Serious: No
  Sender: FDA-Public Use
  Company Number: 10676

PATIENT
  Age: 47 Year
  Sex: Male

DRUGS (3)
  1. FLUOROURACIL [Suspect]
     Dosage: 500 MG
     Route: 042
     Dates: start: 20050203, end: 20050216
  2. LEUCOVORIN CALCIUM [Suspect]
     Dosage: 20 MG FREQ
     Route: 042
     Dates: start: 20050203, end: 20050216
  3. OXALIPLATIN [Suspect]
     Dosage: 85 MG
     Route: 042
     Dates: start: 20050203, end: 20050216

REACTIONS (3)
  - BACK PAIN [None]
  - DYSPNOEA [None]
  - RASH ERYTHEMATOUS [None]
